FAERS Safety Report 12166524 (Version 2)
Quarter: 2016Q2

REPORT INFORMATION
  Report Type: Report from Study
  Country: AU (occurrence: AU)
  Receive Date: 20160309
  Receipt Date: 20160415
  Transmission Date: 20160815
  Serious: Yes (Other)
  Sender: FDA-Public Use
  Company Number: AU-ABBVIE-16P-008-1578689-00

PATIENT
  Age: 67 Year
  Sex: Male

DRUGS (5)
  1. FISH OIL [Concomitant]
     Active Substance: FISH OIL
     Indication: ROUTINE HEALTH MAINTENANCE
     Route: 048
  2. RIBAVIRIN. [Suspect]
     Active Substance: RIBAVIRIN
     Indication: CHRONIC HEPATITIS C
     Dosage: 200MG X 3 BID DAILY
     Route: 048
     Dates: start: 20151027, end: 20160119
  3. MAGNESIUM [Concomitant]
     Active Substance: MAGNESIUM
     Indication: MUSCLE SPASMS
     Route: 048
  4. VIEKIRA PAK [Suspect]
     Active Substance: DASABUVIR\OMBITASVIR\PARITAPREVIR\RITONAVIR
     Indication: CHRONIC HEPATITIS C
     Dosage: 3D X 2 IN AM, DASABUVIR 250MG BID
     Route: 048
     Dates: start: 20151027, end: 20160119
  5. FISH OIL [Concomitant]
     Active Substance: FISH OIL
     Indication: ARTHRITIS

REACTIONS (1)
  - Oesophageal squamous cell carcinoma metastatic [Unknown]

NARRATIVE: CASE EVENT DATE: 20160205
